FAERS Safety Report 13603402 (Version 1)
Quarter: 2017Q2

REPORT INFORMATION
  Report Type: Spontaneous
  Country: US (occurrence: US)
  Receive Date: 20170601
  Receipt Date: 20170601
  Transmission Date: 20170830
  Serious: Yes (Death)
  Sender: FDA-Public Use
  Company Number: US-PROMETHEUS LABORATORIES-2017PL000026

PATIENT
  Age: 59 Year
  Sex: Female

DRUGS (1)
  1. PROLEUKIN [Suspect]
     Active Substance: ALDESLEUKIN
     Indication: RENAL CELL CARCINOMA
     Dosage: UNK UNKNOWN, UNK
     Route: 065

REACTIONS (3)
  - Pneumonia [Fatal]
  - Sepsis [Fatal]
  - Shock [Fatal]
